FAERS Safety Report 19927385 (Version 2)
Quarter: 2021Q4

REPORT INFORMATION
  Report Type: Spontaneous
  Country: US (occurrence: US)
  Receive Date: 20211007
  Receipt Date: 20211123
  Transmission Date: 20220303
  Serious: Yes (Other)
  Sender: FDA-Public Use
  Company Number: US-BIOVITRUM-2021US8800

PATIENT
  Age: 46 Year
  Sex: Female

DRUGS (1)
  1. KINERET [Suspect]
     Active Substance: ANAKINRA
     Indication: Still^s disease
     Route: 058
     Dates: start: 202003

REACTIONS (5)
  - Still^s disease [Unknown]
  - Condition aggravated [Unknown]
  - Cardiac stress test abnormal [Unknown]
  - Blood cholesterol increased [Unknown]
  - Off label use [Unknown]

NARRATIVE: CASE EVENT DATE: 20200301
